FAERS Safety Report 6688089-0 (Version None)
Quarter: 2010Q2

REPORT INFORMATION
  Report Type: 
  Country: None (occurrence: None)
  Receive Date: 20100420
  Receipt Date: 20100409
  Transmission Date: 20101027
  Serious: Yes (Other)
  Sender: FDA-Public Use
  Company Number: DE-JNJFOC-20100307502

PATIENT
  Age: 6 Month
  Sex: Male

DRUGS (4)
  1. TOPAMAX [Suspect]
     Indication: CONVULSION
     Route: 065
  2. OSPOLOT [Concomitant]
     Route: 065
  3. FERROSANOL [Concomitant]
     Route: 065
  4. AMBROXOL [Concomitant]
     Route: 055

REACTIONS (7)
  - ABASIA [None]
  - ABDOMINAL PAIN [None]
  - APHASIA [None]
  - ARRHYTHMIA [None]
  - OFF LABEL USE [None]
  - PAINFUL DEFAECATION [None]
  - RENAL DISORDER [None]
